FAERS Safety Report 10093935 (Version 1)
Quarter: 2014Q2

REPORT INFORMATION
  Report Type: Spontaneous
  Country: US (occurrence: US)
  Receive Date: 20140421
  Receipt Date: 20140421
  Transmission Date: 20141212
  Serious: No
  Sender: FDA-Public Use
  Company Number: US-SA-2014SA029841

PATIENT
  Age: 60 Year
  Sex: Female
  Weight: 85 kg

DRUGS (6)
  1. ALLEGRA D [Suspect]
     Indication: SEASONAL ALLERGY
     Dosage: DOSE: 1 TABLET
     Route: 048
     Dates: start: 20140301, end: 20140306
  2. ALLEGRA D [Suspect]
     Indication: RHINORRHOEA
     Dosage: DOSE: 1 TABLET
     Route: 048
     Dates: start: 20140301, end: 20140306
  3. ALLEGRA D [Suspect]
     Indication: SNEEZING
     Dosage: DOSE: 1 TABLET
     Route: 048
     Dates: start: 20140301, end: 20140306
  4. ALLEGRA D [Suspect]
     Indication: EYE PRURITUS
     Dosage: DOSE: 1 TABLET
     Route: 048
     Dates: start: 20140301, end: 20140306
  5. ALLEGRA D [Suspect]
     Indication: LACRIMATION INCREASED
     Dosage: DOSE: 1 TABLET
     Route: 048
     Dates: start: 20140301, end: 20140306
  6. ALLEGRA D [Suspect]
     Indication: HEAD DISCOMFORT
     Dosage: DOSE: 1 TABLET
     Route: 048
     Dates: start: 20140301, end: 20140306

REACTIONS (7)
  - Sneezing [Not Recovered/Not Resolved]
  - Feeling abnormal [Unknown]
  - Eye disorder [Unknown]
  - Eye haemorrhage [Unknown]
  - Eye pruritus [Unknown]
  - Rhinorrhoea [Unknown]
  - Drug ineffective [Unknown]
